FAERS Safety Report 23845563 (Version 2)
Quarter: 2024Q3

REPORT INFORMATION
  Report Type: Spontaneous
  Country: US (occurrence: None)
  Receive Date: 20240511
  Receipt Date: 20240712
  Transmission Date: 20241016
  Serious: No
  Sender: ASTRAZENECA
  Company Number: 2024A100748

PATIENT
  Sex: Female

DRUGS (1)
  1. SYMLIN [Suspect]
     Active Substance: PRAMLINTIDE ACETATE
     Dosage: 1.5ML UNKNOWN
     Route: 058

REACTIONS (3)
  - Somnolence [Unknown]
  - Device malfunction [Unknown]
  - Wrong technique in device usage process [Unknown]
